FAERS Safety Report 5060105-1 (Version None)
Quarter: 2006Q3

REPORT INFORMATION
  Report Type: 
  Country: None (occurrence: None)
  Receive Date: 20060724
  Receipt Date: 20060704
  Transmission Date: 20061208
  Serious: Yes (Life-Threatening, Hospitalization)
  Sender: FDA-Public Use
  Company Number: JP-AVENTIS-200612070JP

PATIENT
  Age: 71 Year
  Sex: Female
  Weight: 38.6 kg

DRUGS (9)
  1. TAXOTERE [Suspect]
     Indication: OVARIAN CANCER
     Route: 041
     Dates: start: 20060613, end: 20060613
  2. GEMZAR [Concomitant]
     Indication: OVARIAN CANCER
     Route: 041
     Dates: start: 20060606, end: 20060606
  3. GEMZAR [Concomitant]
     Route: 041
     Dates: start: 20060613, end: 20060613
  4. GEMZAR [Concomitant]
     Route: 041
     Dates: start: 20060627, end: 20060627
  5. LANIRAPID [Concomitant]
     Indication: ATRIAL FIBRILLATION
     Route: 048
  6. WARFARIN SODIUM [Concomitant]
     Indication: ATRIAL FIBRILLATION
     Route: 048
  7. RENIVACE [Concomitant]
     Indication: HYPERTENSION
     Route: 048
     Dates: end: 20060704
  8. NORITREN [Concomitant]
     Indication: CANCER PAIN
     Route: 048
     Dates: start: 20060619
  9. DUROTEP [Concomitant]
     Indication: CANCER PAIN
     Dates: start: 20051001

REACTIONS (3)
  - CANCER PAIN [None]
  - INTERSTITIAL LUNG DISEASE [None]
  - PROCTALGIA [None]
